FAERS Safety Report 12456546 (Version 1)
Quarter: 2016Q2

REPORT INFORMATION
  Report Type: Spontaneous
  Country: US (occurrence: US)
  Receive Date: 20160610
  Receipt Date: 20160610
  Transmission Date: 20160815
  Serious: Yes (Life-Threatening, Hospitalization)
  Sender: FDA-Public Use
  Company Number: PHHY2016US076966

PATIENT
  Age: 28 Year
  Sex: Female

DRUGS (5)
  1. GABAPENTIN. [Concomitant]
     Active Substance: GABAPENTIN
     Indication: DRUG WITHDRAWAL SYNDROME
     Route: 065
  2. CIMETIDINE [Suspect]
     Active Substance: CIMETIDINE
     Dosage: 10 DF, QD
     Route: 065
  3. LOPERAMIDE [Suspect]
     Active Substance: LOPERAMIDE
     Indication: DRUG WITHDRAWAL SYNDROME
     Dosage: 400-600 MG, QD
     Route: 065
  4. CIMETIDINE [Suspect]
     Active Substance: CIMETIDINE
     Indication: DRUG WITHDRAWAL SYNDROME
     Dosage: 2000 MG, QD
     Route: 065
  5. LOPERAMIDE [Suspect]
     Active Substance: LOPERAMIDE
     Dosage: 100 DF, QD
     Route: 065

REACTIONS (5)
  - Intentional overdose [Unknown]
  - Ventricular arrhythmia [Recovered/Resolved]
  - Myoclonus [Recovered/Resolved]
  - Syncope [Recovered/Resolved]
  - Drug abuse [Recovered/Resolved]
